FAERS Safety Report 10231849 (Version 1)
Quarter: 2014Q2

REPORT INFORMATION
  Report Type: Spontaneous
  Country: US (occurrence: US)
  Receive Date: 20140612
  Receipt Date: 20140612
  Transmission Date: 20141212
  Serious: Yes (Other)
  Sender: FDA-Public Use
  Company Number: US-AMGEN-USASP2014043285

PATIENT
  Age: 47 Year
  Sex: Female

DRUGS (2)
  1. ENBREL [Suspect]
     Indication: SJOGREN^S SYNDROME
     Dosage: 50 MG, QWK
     Route: 065
     Dates: start: 20110201
  2. ENBREL [Suspect]
     Indication: SYSTEMIC LUPUS ERYTHEMATOSUS

REACTIONS (1)
  - Urinary tract infection [Recovered/Resolved]
